FAERS Safety Report 14950364 (Version 3)
Quarter: 2018Q3

REPORT INFORMATION
  Report Type: Spontaneous
  Country: IT (occurrence: IT)
  Receive Date: 20180530
  Receipt Date: 20180704
  Transmission Date: 20181010
  Serious: Yes (Hospitalization)
  Sender: FDA-Public Use
  Company Number: IT-TEVA-2018-IT-896037

PATIENT
  Age: 77 Year
  Sex: Male

DRUGS (3)
  1. IRBESARTAN MYLAN 300 MG COMPRESSE [Suspect]
     Active Substance: IRBESARTAN
     Route: 048
  2. METFORMIN [Suspect]
     Active Substance: METFORMIN HYDROCHLORIDE
     Dosage: 1000 MILLIGRAM DAILY;
     Route: 048
  3. INSULIN [Concomitant]
     Active Substance: INSULIN NOS
     Route: 058

REACTIONS (2)
  - Metabolic acidosis [Recovering/Resolving]
  - Hyperglycaemia [Recovering/Resolving]

NARRATIVE: CASE EVENT DATE: 20170708
